FAERS Safety Report 19597578 (Version 3)
Quarter: 2021Q3

REPORT INFORMATION
  Report Type: Spontaneous
  Country: US (occurrence: US)
  Receive Date: 20210723
  Receipt Date: 20210908
  Transmission Date: 20211014
  Serious: No
  Sender: FDA-Public Use
  Company Number: US-AIMMUNE THERAPEUTICS, INC.-2021AIMT00446

PATIENT

DRUGS (3)
  1. PALFORZIA [Suspect]
     Active Substance: PEANUT
     Dosage: 80 MG, ONCE, LAST DOSE PRIOR TO EVENT
     Route: 048
     Dates: start: 20210826, end: 20210826
  2. PALFORZIA [Suspect]
     Active Substance: PEANUT
     Indication: FOOD ALLERGY
     Dosage: 80 MG, 1X/DAY
     Route: 048
     Dates: start: 20210706, end: 20210718
  3. PALFORZIA [Suspect]
     Active Substance: PEANUT
     Dosage: 80 MG, 1X/DAY
     Route: 048
     Dates: start: 20210803, end: 20210826

REACTIONS (12)
  - Rhinorrhoea [Recovering/Resolving]
  - Swelling face [Recovering/Resolving]
  - Nausea [Unknown]
  - Panic reaction [Recovering/Resolving]
  - Abdominal pain [Unknown]
  - Throat irritation [Recovering/Resolving]
  - Urticaria [Recovering/Resolving]
  - Chest discomfort [Recovering/Resolving]
  - Paraesthesia [Recovering/Resolving]
  - Dry throat [Recovering/Resolving]
  - Abdominal discomfort [Unknown]
  - Pruritus [Recovering/Resolving]

NARRATIVE: CASE EVENT DATE: 20210706
